FAERS Safety Report 9692812 (Version 1)
Quarter: 2013Q4

REPORT INFORMATION
  Report Type: Spontaneous
  Country: IE (occurrence: IE)
  Receive Date: 20131118
  Receipt Date: 20131118
  Transmission Date: 20140711
  Serious: Yes (Hospitalization)
  Sender: FDA-Public Use
  Company Number: IE-JNJFOC-20131108161

PATIENT
  Age: 76 Year
  Sex: Female

DRUGS (5)
  1. XARELTO [Suspect]
     Indication: CEREBROVASCULAR ACCIDENT PROPHYLAXIS
     Route: 048
  2. XARELTO [Suspect]
     Indication: ATRIAL FIBRILLATION
     Route: 048
  3. ASPIRIN [Concomitant]
     Route: 065
  4. ZOTON [Concomitant]
     Route: 065
  5. LIPOSTAT [Concomitant]
     Route: 065

REACTIONS (4)
  - Pallor [Unknown]
  - Dizziness [Unknown]
  - Haemoglobin decreased [Unknown]
  - Malaise [Unknown]
